FAERS Safety Report 18054967 (Version 1)
Quarter: 2020Q3

REPORT INFORMATION
  Report Type: Spontaneous
  Country: US (occurrence: US)
  Receive Date: 20200722
  Receipt Date: 20200722
  Transmission Date: 20201103
  Serious: Yes (Other)
  Sender: FDA-Public Use
  Company Number: US-AMGEN-USASP2020116898

PATIENT
  Age: 74 Year
  Sex: Female

DRUGS (22)
  1. DESVENLAFAXINE SUCCINATE. [Concomitant]
     Active Substance: DESVENLAFAXINE SUCCINATE
     Dosage: 1 DOSAGE FORM, QD
     Dates: start: 20200501
  2. FLUOCINOLONE [Concomitant]
     Active Substance: FLUOCINOLONE
     Dosage: APPLY TO AFFECTED AREA TWICE DAILY
     Dates: start: 20190329
  3. HYDROXYZINE HCL [Concomitant]
     Active Substance: HYDROXYZINE HYDROCHLORIDE
     Dosage: UNK
     Dates: start: 20190130
  4. LOSARTAN. [Concomitant]
     Active Substance: LOSARTAN
     Dosage: 1 DOSAGE FORM, QD
     Route: 048
     Dates: start: 20200601
  5. AMMONIUM LACTATE. [Concomitant]
     Active Substance: AMMONIUM LACTATE
     Dosage: APPLY ON AFFECTED AREAS ON BODY ONCE TO TWICE A DAY
     Dates: start: 20190329
  6. TYLENOL [Concomitant]
     Active Substance: ACETAMINOPHEN
     Dosage: 500 MILLIGRAM
  7. CALCIPOTRIENE AND BETAMETHASONE DIPROPIONATE [Concomitant]
     Active Substance: BETAMETHASONE DIPROPIONATE\CALCIPOTRIENE
     Dosage: UNK, APPLY TO SCALP EVERY DAY
  8. METOPROLOLSUCCINAAT [Concomitant]
     Active Substance: METOPROLOL SUCCINATE
     Dosage: 2 DOSAGE FORM, QD
     Route: 048
     Dates: start: 20200705
  9. TEMAZEPAM. [Concomitant]
     Active Substance: TEMAZEPAM
     Dosage: 1 DOSAGE FORM, QD
     Route: 048
  10. PHENTERMINE. [Concomitant]
     Active Substance: PHENTERMINE
     Dosage: 1 DOSAGE FORM, QD
     Route: 048
     Dates: start: 20191021
  11. FLUCONAZOLE. [Concomitant]
     Active Substance: FLUCONAZOLE
     Dosage: 1 DOSAGE FORM, QWK
     Dates: start: 20190807
  12. TRAZODONE [Concomitant]
     Active Substance: TRAZODONE HYDROCHLORIDE
     Dosage: 1 DOSAGE FORM, QD
     Route: 048
     Dates: start: 20190107
  13. VITAMIN D2 [Concomitant]
     Active Substance: ERGOCALCIFEROL
     Dosage: 1 DOSAGE FORM, QWK
     Dates: start: 20181201
  14. BENZOYL PEROXIDE. [Concomitant]
     Active Substance: BENZOYL PEROXIDE
     Dosage: UNK, 10 PERCENT WASH 148 ML
     Dates: start: 20190202
  15. NIFEDIPINE. [Concomitant]
     Active Substance: NIFEDIPINE
     Dosage: 1 DOSAGE FORM, QD
     Route: 048
     Dates: start: 20200608
  16. VITAMIN E [Concomitant]
     Active Substance: .ALPHA.-TOCOPHEROL
  17. ARIPIPRAZOLE. [Concomitant]
     Active Substance: ARIPIPRAZOLE
     Dosage: 1 DOSAGE FORM, QD
     Route: 048
     Dates: start: 20190705
  18. BETAMETHASONE. [Concomitant]
     Active Substance: BETAMETHASONE
     Dosage: UNK, APPLY TO SCALP DAILY
     Dates: start: 20190401
  19. SALICYLIC ACID. [Concomitant]
     Active Substance: SALICYLIC ACID
     Dosage: UNK, APPLY EXTERNALLY ONE TIME A WEEK
     Dates: start: 20190225
  20. OTEZLA [Suspect]
     Active Substance: APREMILAST
     Indication: PSORIATIC ARTHROPATHY
     Dosage: 30 MILLIGRAM, BID
     Route: 048
     Dates: start: 20190227
  21. KETOCONAZOLE. [Concomitant]
     Active Substance: KETOCONAZOLE
     Dosage: UNK, APPLY THIN LAYER TWICE DAILY UNDER BREAST AND GROIN
     Dates: start: 20191219
  22. BIOTIN [Concomitant]
     Active Substance: BIOTIN
     Dosage: 1000 MICROGRAM

REACTIONS (2)
  - Psoriatic arthropathy [Not Recovered/Not Resolved]
  - Alopecia [Not Recovered/Not Resolved]

NARRATIVE: CASE EVENT DATE: 202006
